FAERS Safety Report 5196980-X (Version None)
Quarter: 2006Q4

REPORT INFORMATION
  Report Type: 
  Country: None (occurrence: None)
  Receive Date: 20061227
  Receipt Date: 20061211
  Transmission Date: 20070319
  Serious: Yes (Other)
  Sender: FDA-Public Use
  Company Number: STI-2006-00742

PATIENT
  Age: 37 Year
  Sex: Female

DRUGS (4)
  1. 476B CLARIDERM GEL (HYDROQUINONE) (HYDROQUINONE) (GEL)) [Suspect]
     Indication: PIGMENTATION DISORDER
     Dosage: TOPICAL
     Route: 061
     Dates: start: 20061101, end: 20061103
  2. SUNSCREENS (SUNSCREEN) [Concomitant]
  3. BEROTEC [Concomitant]
  4. CEBION (ASCORBIC ACID) [Concomitant]

REACTIONS (1)
  - SKIN HYPERPIGMENTATION [None]
